FAERS Safety Report 7467989-8 (Version None)
Quarter: 2011Q2

REPORT INFORMATION
  Report Type: 
  Country: None (occurrence: None)
  Receive Date: 20110509
  Receipt Date: 20110428
  Transmission Date: 20111010
  Serious: Yes (Other)
  Sender: FDA-Public Use
  Company Number: AR-AMGEN-ARGSP2011022994

PATIENT
  Sex: Male

DRUGS (2)
  1. ENBREL [Suspect]
     Dosage: UNK
     Dates: start: 20110301
  2. ENBREL [Suspect]
     Indication: PRODUCT USED FOR UNKNOWN INDICATION
     Dosage: UNK
     Dates: end: 20100101

REACTIONS (2)
  - SURGERY [None]
  - VIRAL INFECTION [None]
